FAERS Safety Report 7277752-9 (Version None)
Quarter: 2011Q1

REPORT INFORMATION
  Report Type: 
  Country: None (occurrence: None)
  Receive Date: 20110207
  Receipt Date: 20100125
  Transmission Date: 20110831
  Serious: No
  Sender: FDA-Public Use
  Company Number: A0838739A

PATIENT
  Age: 78 Year
  Sex: Female

DRUGS (5)
  1. MULTIVITAMIN [Concomitant]
  2. CALCIUM [Concomitant]
  3. OLUX E [Suspect]
     Indication: ALLERGY TO CHEMICALS
     Route: 061
  4. SYNTHROID [Concomitant]
  5. DYAZIDE [Concomitant]

REACTIONS (2)
  - DRUG INEFFECTIVE [None]
  - PRODUCT QUALITY ISSUE [None]
